FAERS Safety Report 10951291 (Version 1)
Quarter: 2015Q1

REPORT INFORMATION
  Report Type: Spontaneous
  Country: US (occurrence: None)
  Receive Date: 20150226
  Receipt Date: 20150226
  Transmission Date: 20150721
  Serious: Yes (Other)
  Sender: FDA-Public Use
  Company Number: PHEH2014US016731

PATIENT
  Age: 16 Year
  Sex: Female

DRUGS (4)
  1. CALCIUM [Concomitant]
     Active Substance: CALCIUM
  2. TEGRETOL [Suspect]
     Active Substance: CARBAMAZEPINE
  3. TEGRETOL [Suspect]
     Active Substance: CARBAMAZEPINE
     Dates: start: 201308
  4. COQ10 (UBIDECARENONE) [Concomitant]
     Active Substance: UBIDECARENONE

REACTIONS (8)
  - Muscle spasms [None]
  - Nausea [None]
  - Vomiting [None]
  - Paralysis [None]
  - Hypoaesthesia [None]
  - Joint lock [None]
  - Hypokinesia [None]
  - Pain [None]
